FAERS Safety Report 9872514 (Version 1)
Quarter: 2014Q1

REPORT INFORMATION
  Report Type: Other
  Country: US (occurrence: US)
  Receive Date: 20140206
  Receipt Date: 20140206
  Transmission Date: 20141002
  Serious: No
  Sender: FDA-Public Use
  Company Number: US-ACORDA-ACO_100326_2013

PATIENT
  Sex: Female
  Weight: 120.18 kg

DRUGS (4)
  1. AMPYRA [Suspect]
     Indication: FATIGUE
     Dosage: 10 MG, Q 12 HRS
     Route: 048
     Dates: start: 20130930
  2. GABAPENTIN [Concomitant]
     Indication: PRODUCT USED FOR UNKNOWN INDICATION
     Dosage: 3200 MG, QD
     Route: 065
  3. BACLOFEN [Concomitant]
     Indication: PRODUCT USED FOR UNKNOWN INDICATION
     Dosage: UNK
     Route: 065
  4. DIMETHYL FUMARATE [Concomitant]
     Indication: PRODUCT USED FOR UNKNOWN INDICATION
     Dosage: UNK
     Route: 065
     Dates: start: 20131019

REACTIONS (1)
  - Drug ineffective for unapproved indication [Not Recovered/Not Resolved]
